FAERS Safety Report 6178544-4 (Version None)
Quarter: 2009Q2

REPORT INFORMATION
  Report Type: 
  Country: None (occurrence: None)
  Receive Date: 20090504
  Receipt Date: 20090429
  Transmission Date: 20091009
  Serious: Yes (Death)
  Sender: FDA-Public Use
  Company Number: US-GILEAD-2009-0021362

PATIENT
  Sex: Male
  Weight: 117.59 kg

DRUGS (10)
  1. LETAIRIS [Suspect]
     Indication: PULMONARY ARTERIAL HYPERTENSION
     Route: 048
     Dates: start: 20090122, end: 20090326
  2. REVATIO [Concomitant]
  3. LASIX [Concomitant]
  4. AMLODIPINE BESYLATE [Concomitant]
  5. NADOLOL [Concomitant]
  6. TIMOLOL MALEATE [Concomitant]
  7. GLIPIZIDE [Concomitant]
  8. PRILOSEC [Concomitant]
  9. TYLENOL [Concomitant]
  10. LUMIGAN [Concomitant]

REACTIONS (2)
  - CHRONIC HEPATIC FAILURE [None]
  - HYPOTENSION [None]
